FAERS Safety Report 14157740 (Version 2)
Quarter: 2018Q1

REPORT INFORMATION
  Report Type: Report from Study
  Country: US (occurrence: US)
  Receive Date: 20171103
  Receipt Date: 20180214
  Transmission Date: 20180508
  Serious: No
  Sender: FDA-Public Use
  Company Number: US-PUMA BIOTECHNOLOGY, LTD.-2017US013235

PATIENT

DRUGS (5)
  1. LEVOTHYROXINE. [Concomitant]
     Active Substance: LEVOTHYROXINE
     Dosage: 75 ?G, UNK
  2. NERLYNX [Suspect]
     Active Substance: NERATINIB
     Indication: BREAST CANCER
     Dosage: 240 MG (6 TABLETS), DAILY
     Route: 048
     Dates: start: 20170924
  3. IMODIUM [Concomitant]
     Active Substance: LOPERAMIDE HYDROCHLORIDE
     Indication: PRODUCT USED FOR UNKNOWN INDICATION
     Dosage: TID
  4. PANTOPRAZOLE [Concomitant]
     Active Substance: PANTOPRAZOLE
     Indication: PRODUCT USED FOR UNKNOWN INDICATION
  5. IMODIUM [Concomitant]
     Active Substance: LOPERAMIDE HYDROCHLORIDE
     Dosage: BID

REACTIONS (7)
  - Fatigue [Unknown]
  - Gastrooesophageal reflux disease [Recovering/Resolving]
  - Constipation [Recovered/Resolved]
  - Diarrhoea [Unknown]
  - Nausea [Unknown]
  - Dysgeusia [Unknown]
  - Muscle spasms [Unknown]

NARRATIVE: CASE EVENT DATE: 201709
